FAERS Safety Report 22758761 (Version 2)
Quarter: 2023Q4

REPORT INFORMATION
  Report Type: Spontaneous
  Country: US (occurrence: US)
  Receive Date: 20230728
  Receipt Date: 20231207
  Transmission Date: 20240109
  Serious: Yes (Other)
  Sender: FDA-Public Use
  Company Number: US-SERVIER-S23007673

PATIENT

DRUGS (2)
  1. ASPARLAS [Suspect]
     Active Substance: CALASPARGASE PEGOL-MKNL
     Indication: B-cell type acute leukaemia
     Dosage: 2500 IU/M2, QD OVER 2 HOURS
     Route: 042
     Dates: start: 20230707, end: 20230707
  2. ASPARLAS [Suspect]
     Active Substance: CALASPARGASE PEGOL-MKNL
     Dosage: 2500 IU/M2, QD OVER 2 HOURS
     Route: 042
     Dates: start: 202309, end: 202309

REACTIONS (3)
  - Hypersensitivity [Recovered/Resolved]
  - Enzyme inhibition [Unknown]
  - Drug specific antibody [Unknown]

NARRATIVE: CASE EVENT DATE: 20230901
